FAERS Safety Report 7220702-1 (Version None)
Quarter: 2011Q1

REPORT INFORMATION
  Report Type: 
  Country: None (occurrence: None)
  Receive Date: 20110111
  Receipt Date: 20110104
  Transmission Date: 20110831
  Serious: Yes (Other)
  Sender: FDA-Public Use
  Company Number: US-ELI_LILLY_AND_COMPANY-US201101001134

PATIENT
  Sex: Male

DRUGS (2)
  1. METFORMIN [Concomitant]
  2. HUMALOG [Suspect]
     Indication: DIABETES MELLITUS
     Route: 058
     Dates: start: 20101201

REACTIONS (6)
  - MALAISE [None]
  - PRESYNCOPE [None]
  - TACHYCARDIA [None]
  - LOSS OF CONSCIOUSNESS [None]
  - HYPERSENSITIVITY [None]
  - PANIC ATTACK [None]
